FAERS Safety Report 8329357-6 (Version None)
Quarter: 2012Q2

REPORT INFORMATION
  Report Type: 
  Country: None (occurrence: None)
  Receive Date: 20120502
  Receipt Date: 20120426
  Transmission Date: 20120825
  Serious: No
  Sender: FDA-Public Use
  Company Number: US-TEVA-335814USA

PATIENT
  Sex: Male

DRUGS (3)
  1. AZILECT [Suspect]
     Indication: PARKINSON'S DISEASE
     Route: 048
  2. CELEXA [Suspect]
     Indication: ANXIETY
     Route: 048
  3. SINEMET [Concomitant]

REACTIONS (5)
  - ANXIETY [None]
  - VOMITING [None]
  - FEELING ABNORMAL [None]
  - NAUSEA [None]
  - RETCHING [None]
